FAERS Safety Report 13729212 (Version 1)
Quarter: 2017Q3

REPORT INFORMATION
  Report Type: Spontaneous
  Country: AT (occurrence: AT)
  Receive Date: 20170707
  Receipt Date: 20170707
  Transmission Date: 20171127
  Serious: Yes (Death, Hospitalization, Other)
  Sender: FDA-Public Use
  Company Number: AT-ACCORD-053287

PATIENT
  Age: 46 Year
  Sex: Male

DRUGS (7)
  1. LEVOFLOXACIN/LEVOFLOXACIN MESYLATE [Suspect]
     Active Substance: LEVOFLOXACIN
     Indication: SYSTEMIC INFLAMMATORY RESPONSE SYNDROME
     Dosage: ON DAY -14 TO 0
  2. MEROPENEM. [Suspect]
     Active Substance: MEROPENEM
     Indication: SYSTEMIC INFLAMMATORY RESPONSE SYNDROME
     Dosage: ON DAY -6 TO 0
  3. LINEZOLID. [Suspect]
     Active Substance: LINEZOLID
     Indication: SYSTEMIC INFLAMMATORY RESPONSE SYNDROME
     Dosage: ON DAY -6 TO 0
  4. PREDNISOLONE. [Suspect]
     Active Substance: PREDNISOLONE
     Indication: SYSTEMIC INFLAMMATORY RESPONSE SYNDROME
  5. AMOXICILLIN/CLAVULANIC ACID [Suspect]
     Active Substance: AMOXICILLIN\CLAVULANIC ACID
     Indication: SYSTEMIC INFLAMMATORY RESPONSE SYNDROME
     Dosage: ON DAY -30 TO -16
  6. CEFEPIME [Suspect]
     Active Substance: CEFEPIME HYDROCHLORIDE
     Indication: SYSTEMIC INFLAMMATORY RESPONSE SYNDROME
     Dosage: ON DAY -15 TO -7
  7. METHOTREXATE. [Suspect]
     Active Substance: METHOTREXATE
     Indication: PRODUCT USED FOR UNKNOWN INDICATION

REACTIONS (5)
  - Enterocolitis [Fatal]
  - Acute respiratory distress syndrome [Unknown]
  - Multiple organ dysfunction syndrome [Fatal]
  - Systemic inflammatory response syndrome [Unknown]
  - Pneumonitis [Unknown]
